FAERS Safety Report 7176489-4 (Version None)
Quarter: 2010Q4

REPORT INFORMATION
  Report Type: 
  Country: None (occurrence: None)
  Receive Date: 20101220
  Receipt Date: 20101208
  Transmission Date: 20110411
  Serious: Yes (Hospitalization)
  Sender: FDA-Public Use
  Company Number: FR-CELGENEUS-056-C5013-10092633

PATIENT
  Sex: Female

DRUGS (6)
  1. CC-5013 [Suspect]
     Indication: MULTIPLE MYELOMA
     Route: 048
     Dates: start: 20090515
  2. CC-5013 [Suspect]
     Route: 048
     Dates: start: 20100902, end: 20100928
  3. DEXAMETHASONE [Suspect]
     Indication: MULTIPLE MYELOMA
     Route: 065
     Dates: start: 20090515
  4. DEXAMETHASONE [Suspect]
     Route: 065
     Dates: start: 20100902, end: 20100928
  5. KARDEGIC [Concomitant]
     Route: 048
     Dates: start: 20090515
  6. KARDEGIC [Concomitant]
     Route: 065
     Dates: start: 20100902

REACTIONS (2)
  - BACK PAIN [None]
  - WRIST FRACTURE [None]
